FAERS Safety Report 10183202 (Version 1)
Quarter: 2014Q2

REPORT INFORMATION
  Report Type: Spontaneous
  Country: US (occurrence: US)
  Receive Date: 20140520
  Receipt Date: 20140520
  Transmission Date: 20141212
  Serious: No
  Sender: FDA-Public Use
  Company Number: US-009507513-1405USA008183

PATIENT
  Sex: Male

DRUGS (1)
  1. GRASTEK [Suspect]
     Indication: SEASONAL ALLERGY
     Dosage: 2800 BAU, ONCE DAILY
     Route: 060
     Dates: start: 20140501, end: 201405

REACTIONS (1)
  - Stomatitis [Recovered/Resolved]
